FAERS Safety Report 9997794 (Version 1)
Quarter: 2014Q1

REPORT INFORMATION
  Report Type: Spontaneous
  Country: PR (occurrence: US)
  Receive Date: 20140311
  Receipt Date: 20140311
  Transmission Date: 20141002
  Serious: No
  Sender: FDA-Public Use
  Company Number: PR-PFIZER INC-2014065743

PATIENT
  Age: 43 Year
  Sex: Female

DRUGS (1)
  1. FLECTOR [Suspect]
     Dosage: UNK

REACTIONS (2)
  - Pruritus [Unknown]
  - Rash [Unknown]
